FAERS Safety Report 9236548 (Version 1)
Quarter: 2013Q2

REPORT INFORMATION
  Report Type: Spontaneous
  Country: US (occurrence: US)
  Receive Date: 20130417
  Receipt Date: 20130417
  Transmission Date: 20140414
  Serious: No
  Sender: FDA-Public Use
  Company Number: US-TEVA-398113USA

PATIENT
  Sex: Female
  Weight: 81.72 kg

DRUGS (7)
  1. AZILECT [Suspect]
  2. SINEMET [Suspect]
  3. AMANTADINE [Concomitant]
  4. ATENOLOL [Concomitant]
  5. SULINDAC [Concomitant]
  6. CELEXA [Concomitant]
  7. FLEXERIL [Concomitant]
     Indication: MUSCULOSKELETAL STIFFNESS

REACTIONS (5)
  - Menstruation irregular [Unknown]
  - Musculoskeletal stiffness [Unknown]
  - Joint stiffness [Unknown]
  - Muscle rigidity [Unknown]
  - Drug ineffective [Unknown]
